FAERS Safety Report 8522437-1 (Version None)
Quarter: 2012Q3

REPORT INFORMATION
  Report Type: 
  Country: None (occurrence: None)
  Receive Date: 20120719
  Receipt Date: 20120716
  Transmission Date: 20120928
  Serious: Yes (Other)
  Sender: FDA-Public Use
  Company Number: BR-PFIZER INC-2012173219

PATIENT
  Age: 65 Year
  Sex: Female

DRUGS (4)
  1. LIPITOR [Suspect]
     Indication: BLOOD CHOLESTEROL
     Dosage: 20 MG, 1X/DAY
     Route: 048
     Dates: start: 20110701, end: 20120713
  2. LIPITOR [Suspect]
     Indication: BLOOD CHOLESTEROL INCREASED
  3. INSULIN [Concomitant]
     Indication: DIABETES MELLITUS
     Dosage: 30 ML, 1X/DAY
  4. BENICAR [Concomitant]
     Indication: BLOOD PRESSURE INCREASED
     Dosage: 1 DF, 1X/DAY
     Dates: start: 20070101

REACTIONS (1)
  - GLAUCOMA [None]
